FAERS Safety Report 13243615 (Version 1)
Quarter: 2017Q1

REPORT INFORMATION
  Report Type: Spontaneous
  Country: US (occurrence: US)
  Receive Date: 20170216
  Receipt Date: 20170216
  Transmission Date: 20170428
  Serious: Yes (Hospitalization)
  Sender: FDA-Public Use
  Company Number: US-ACTELION-A-US2017-149847

PATIENT
  Age: 21 Month
  Sex: Male

DRUGS (5)
  1. KEPPRA [Concomitant]
     Active Substance: LEVETIRACETAM
     Dosage: 1.5 MG, BID
     Route: 048
     Dates: start: 20160825
  2. TYLENOL COLD (ACETAMINOPHEN\CHLORPHENIRAMINE\PHENYLPROPANOLAMINE) [Concomitant]
     Active Substance: ACETAMINOPHEN\CHLORPHENIRAMINE\PHENYLPROPANOLAMINE
     Dosage: UNK, QD
     Route: 048
     Dates: start: 20160825
  3. ZAVESCA [Suspect]
     Active Substance: MIGLUSTAT
     Indication: LIPIDOSIS
     Dosage: 100 MG, TID
     Route: 048
     Dates: start: 20160914
  4. IBUPROFEN. [Concomitant]
     Active Substance: IBUPROFEN
     Dosage: 100MG/5ML
     Dates: start: 20160825
  5. SULFATRIM [Concomitant]
     Active Substance: SULFAMETHOXAZOLE\TRIMETHOPRIM
     Dosage: 5 ML, QD
     Dates: start: 20160825

REACTIONS (1)
  - Seizure [Unknown]
